FAERS Safety Report 11252077 (Version 1)
Quarter: 2015Q3

REPORT INFORMATION
  Report Type: Spontaneous
  Country: US (occurrence: US)
  Receive Date: 20150708
  Receipt Date: 20150708
  Transmission Date: 20151125
  Serious: Yes (Other)
  Sender: FDA-Public Use
  Company Number: US-ELI_LILLY_AND_COMPANY-US201301000769

PATIENT
  Sex: Female
  Weight: 64.4 kg

DRUGS (10)
  1. CARDIZEM [Concomitant]
     Active Substance: DILTIAZEM HYDROCHLORIDE
  2. LETAIRIS [Concomitant]
     Active Substance: AMBRISENTAN
  3. DIGOXIN. [Concomitant]
     Active Substance: DIGOXIN
  4. TYVASO [Concomitant]
     Active Substance: TREPROSTINIL
  5. DILAUDID [Concomitant]
     Active Substance: HYDROMORPHONE HYDROCHLORIDE
  6. TRAMADOL. [Concomitant]
     Active Substance: TRAMADOL
  7. ZOFRAN [Concomitant]
     Active Substance: ONDANSETRON HYDROCHLORIDE
  8. NEUPOGEN [Concomitant]
     Active Substance: FILGRASTIM
  9. LASIX [Concomitant]
     Active Substance: FUROSEMIDE
  10. GEMZAR [Suspect]
     Active Substance: GEMCITABINE HYDROCHLORIDE
     Indication: BREAST CANCER
     Dosage: 1440 MG, (800MG/M2) WEEKLY (1/W)
     Route: 042
     Dates: start: 201202, end: 20120919

REACTIONS (1)
  - Malignant neoplasm progression [Not Recovered/Not Resolved]
